FAERS Safety Report 4344852-2 (Version None)
Quarter: 2004Q2

REPORT INFORMATION
  Report Type: 
  Country: None (occurrence: None)
  Receive Date: 20040420
  Receipt Date: 20040412
  Transmission Date: 20050107
  Serious: No
  Sender: FDA-Public Use
  Company Number: 04P-163-0257240

PATIENT
  Age: 50 Year
  Sex: Male

DRUGS (2)
  1. HYDROCHLOROTHIAZIDE [Suspect]
     Dosage: 25 MG
  2. CANDESARTAN CILEXETIL [Suspect]
     Dosage: 32 MG, PER ORAL
     Route: 048

REACTIONS (3)
  - FATIGUE [None]
  - PYREXIA [None]
  - RENAL FAILURE [None]
